FAERS Safety Report 6512348-5 (Version None)
Quarter: 2009Q4

REPORT INFORMATION
  Report Type: 
  Country: None (occurrence: None)
  Receive Date: 20091222
  Receipt Date: 20090706
  Transmission Date: 20100525
  Serious: No
  Sender: FDA-Public Use
  Company Number: US-ASTRAZENECA-2009UW18691

PATIENT
  Age: 53 Year
  Sex: Male
  Weight: 81.6 kg

DRUGS (6)
  1. CRESTOR [Suspect]
     Route: 048
     Dates: start: 20090702
  2. HUMAN GROWTH HORMONE [Concomitant]
  3. TESTOSTERONE [Concomitant]
  4. THYROID TAB [Concomitant]
  5. VITAMINS [Concomitant]
  6. TETRACYCLINE [Concomitant]

REACTIONS (2)
  - BALANCE DISORDER [None]
  - NASOPHARYNGITIS [None]
